FAERS Safety Report 25564375 (Version 1)
Quarter: 2025Q3

REPORT INFORMATION
  Report Type: Spontaneous
  Country: US (occurrence: US)
  Receive Date: 20250716
  Receipt Date: 20250716
  Transmission Date: 20251021
  Serious: No
  Sender: NOVO NORDISK
  Company Number: US-NOVOPROD-1329870

PATIENT
  Age: 66 Year
  Sex: Female

DRUGS (3)
  1. OZEMPIC [Suspect]
     Active Substance: SEMAGLUTIDE
     Indication: Type 2 diabetes mellitus
     Route: 058
  2. OZEMPIC [Suspect]
     Active Substance: SEMAGLUTIDE
     Dosage: 2MG QW
     Route: 058
     Dates: start: 20241103
  3. OZEMPIC [Suspect]
     Active Substance: SEMAGLUTIDE
     Route: 058

REACTIONS (3)
  - Pain of skin [Not Recovered/Not Resolved]
  - Neuropathy peripheral [Unknown]
  - Off label use [Unknown]

NARRATIVE: CASE EVENT DATE: 20241103
